FAERS Safety Report 8853449 (Version 1)
Quarter: 2012Q4

REPORT INFORMATION
  Report Type: 
  Country: JP (occurrence: JP)
  Receive Date: 20121022
  Receipt Date: 20121022
  Transmission Date: 20130627
  Serious: Yes (Hospitalization)
  Sender: FDA-Public Use
  Company Number: JP-GLAXOSMITHKLINE-B0838942A

PATIENT
  Age: 45 Year
  Sex: Female

DRUGS (4)
  1. LAMICTAL [Suspect]
     Indication: BIPOLAR DISORDER
     Dosage: 25MG Twice per day
     Route: 048
     Dates: start: 20120901
  2. SEROQUEL [Concomitant]
     Route: 048
  3. CARBOCISTEINE [Concomitant]
     Route: 048
  4. AMBROXOL HYDROCHLORIDE [Concomitant]
     Route: 048

REACTIONS (4)
  - Rash [Not Recovered/Not Resolved]
  - Nasopharyngitis [Unknown]
  - Eczema [Unknown]
  - Pyrexia [Unknown]
